APPROVED DRUG PRODUCT: POLYMYXIN B SULFATE
Active Ingredient: POLYMYXIN B SULFATE
Strength: EQ 500,000 UNITS BASE/VIAL
Dosage Form/Route: INJECTABLE;INJECTION
Application: A065372 | Product #001 | TE Code: AP
Applicant: FRESENIUS KABI USA LLC
Approved: Jan 10, 2008 | RLD: No | RS: No | Type: RX